FAERS Safety Report 23952552 (Version 1)
Quarter: 2024Q2

REPORT INFORMATION
  Report Type: Spontaneous
  Country: JP (occurrence: JP)
  Receive Date: 20240607
  Receipt Date: 20240607
  Transmission Date: 20240716
  Serious: Yes (Other)
  Sender: FDA-Public Use
  Company Number: JP-CHUGAI-2024018952AA

PATIENT
  Age: 76 Year
  Sex: Male

DRUGS (4)
  1. GAZYVA [Suspect]
     Active Substance: OBINUTUZUMAB
     Indication: Follicular lymphoma
     Dosage: UNK
     Route: 065
     Dates: start: 201903
  2. CYCLOPHOSPHAMIDE [Concomitant]
     Active Substance: CYCLOPHOSPHAMIDE
     Indication: Follicular lymphoma
     Dosage: UNK
     Dates: start: 201012
  3. VINCRISTINE SULFATE [Concomitant]
     Active Substance: VINCRISTINE SULFATE
     Indication: Follicular lymphoma
     Dates: start: 201012
  4. PREDNISOLONE [Concomitant]
     Active Substance: PREDNISOLONE
     Indication: Follicular lymphoma
     Dates: start: 201012

REACTIONS (1)
  - Follicular lymphoma recurrent [Unknown]

NARRATIVE: CASE EVENT DATE: 20240401
